FAERS Safety Report 15098617 (Version 1)
Quarter: 2018Q3

REPORT INFORMATION
  Report Type: Spontaneous
  Country: US (occurrence: US)
  Receive Date: 20180702
  Receipt Date: 20180702
  Transmission Date: 20181010
  Serious: Yes (Hospitalization, Disabling)
  Sender: FDA-Public Use
  Company Number: US-JNJFOC-20180639821

PATIENT
  Age: 71 Year
  Sex: Male

DRUGS (1)
  1. INVOKANA [Suspect]
     Active Substance: CANAGLIFLOZIN
     Indication: TYPE 2 DIABETES MELLITUS
     Route: 048
     Dates: start: 20170131, end: 20170912

REACTIONS (3)
  - Gangrene [Unknown]
  - Leg amputation [Unknown]
  - Skin ulcer [Unknown]

NARRATIVE: CASE EVENT DATE: 201708
